FAERS Safety Report 10162234 (Version 1)
Quarter: 2014Q2

REPORT INFORMATION
  Report Type: Spontaneous
  Country: US (occurrence: US)
  Receive Date: 20140509
  Receipt Date: 20140509
  Transmission Date: 20141212
  Serious: Yes (Death, Hospitalization)
  Sender: FDA-Public Use
  Company Number: US-DRREDDYS-USA/USA/14/0040122

PATIENT
  Age: 46 Year
  Sex: Female

DRUGS (1)
  1. MINOCYCLINE HYDROCHLORIDE [Suspect]
     Indication: DERMATITIS
     Route: 065

REACTIONS (3)
  - Eosinophilic myocarditis [Fatal]
  - Drug reaction with eosinophilia and systemic symptoms [Unknown]
  - Multi-organ failure [Unknown]
